FAERS Safety Report 26026224 (Version 2)
Quarter: 2025Q4

REPORT INFORMATION
  Report Type: Spontaneous
  Country: CN (occurrence: CN)
  Receive Date: 20251111
  Receipt Date: 20251202
  Transmission Date: 20260118
  Serious: Yes (Hospitalization)
  Sender: FERRING
  Company Number: CN-002147023-NVSC2023CN145472

PATIENT

DRUGS (5)
  1. DEGARELIX [Suspect]
     Active Substance: DEGARELIX
     Indication: Hormone-dependent prostate cancer
     Dosage: 80 MG, MONTHLY
     Route: 058
     Dates: start: 20230616, end: 20230616
  2. GALLIUM GA-68 GOZETOTIDE [Suspect]
     Active Substance: GALLIUM GA-68 GOZETOTIDE
     Indication: Hormone-dependent prostate cancer
     Dosage: 5.86 MCI, ONCE/SINGLE
     Route: 042
     Dates: start: 20230606, end: 20230606
  3. REZVILUTAMIDE [Suspect]
     Active Substance: REZVILUTAMIDE
     Indication: Hormone-dependent prostate cancer
     Dosage: 240 MG, ONCE/SINGLE
     Route: 048
     Dates: start: 20230703
  4. HERBALS\DIAMMONIUM GLYCYRRHIZINATE [Concomitant]
     Active Substance: HERBALS\DIAMMONIUM GLYCYRRHIZINATE
     Indication: Product used for unknown indication
     Dosage: UNK
     Route: 065
     Dates: start: 20230525, end: 20230728
  5. LEUPROLIDE ACETATE [Concomitant]
     Active Substance: LEUPROLIDE ACETATE
     Indication: Product used for unknown indication
     Dosage: UNK
     Route: 065
     Dates: start: 20230523

REACTIONS (15)
  - Transaminases increased [Recovered/Resolved]
  - Upper respiratory tract infection [Recovered/Resolved]
  - Hypercholesterolaemia [Recovered/Resolved]
  - Urinary tract pain [Recovered/Resolved]
  - Hyperlipidaemia [Recovered/Resolved]
  - Hypercholesterolaemia [Recovered/Resolved]
  - Anaemia [Recovered/Resolved]
  - Hypercholesterolaemia [Recovered/Resolved]
  - Hyperlipidaemia [Recovered/Resolved]
  - Hypercholesterolaemia [Recovered/Resolved]
  - Anaemia [Recovered/Resolved]
  - Hyperlipidaemia [Recovered/Resolved]
  - Hypercholesterolaemia [Recovered/Resolved]
  - Anaemia [Recovered/Resolved]
  - Hypercholesterolaemia [Not Recovered/Not Resolved]

NARRATIVE: CASE EVENT DATE: 20230616
